FAERS Safety Report 7225850-8 (Version None)
Quarter: 2011Q1

REPORT INFORMATION
  Report Type: 
  Country: None (occurrence: None)
  Receive Date: 20110113
  Receipt Date: 20110106
  Transmission Date: 20110831
  Serious: Yes (Hospitalization)
  Sender: FDA-Public Use
  Company Number: US-US-EMD SERONO, INC.-233498J09USA

PATIENT
  Sex: Female

DRUGS (2)
  1. REBIF [Suspect]
     Indication: MULTIPLE SCLEROSIS
     Route: 058
     Dates: start: 20091112, end: 20091116
  2. BACLOFEN [Suspect]
     Dates: start: 20091117

REACTIONS (8)
  - FALL [None]
  - SOMNOLENCE [None]
  - LETHARGY [None]
  - NAUSEA [None]
  - VOMITING [None]
  - MUSCULAR WEAKNESS [None]
  - INFLUENZA LIKE ILLNESS [None]
  - DEPRESSION [None]
